FAERS Safety Report 14917989 (Version 1)
Quarter: 2018Q2

REPORT INFORMATION
  Report Type: Spontaneous
  Country: FR (occurrence: FR)
  Receive Date: 20180521
  Receipt Date: 20180521
  Transmission Date: 20180711
  Serious: Yes (Other)
  Sender: FDA-Public Use
  Company Number: FR-MERCK KGAA-2048111

PATIENT
  Age: 49 Year
  Sex: Female

DRUGS (1)
  1. NOVOTHYROX [Suspect]
     Active Substance: LEVOTHYROXINE SODIUM
     Indication: PRODUCT USED FOR UNKNOWN INDICATION
     Dates: start: 201704, end: 2017

REACTIONS (27)
  - Diarrhoea [Recovered/Resolved]
  - Restlessness [Recovered/Resolved]
  - Loss of libido [Recovered/Resolved]
  - Pain [Recovered/Resolved]
  - Palpitations [Recovered/Resolved]
  - Suicidal ideation [Recovered/Resolved]
  - Depression [Recovered/Resolved]
  - Anger [Recovered/Resolved]
  - Frustration tolerance decreased [Recovered/Resolved]
  - Feeling guilty [Recovered/Resolved]
  - Asthenia [Recovered/Resolved]
  - Depressed mood [Recovered/Resolved]
  - Insomnia [Recovered/Resolved]
  - Muscle spasms [Recovered/Resolved]
  - Blood thyroid stimulating hormone decreased [None]
  - Anxiety [Recovered/Resolved]
  - Feeling of body temperature change [Recovered/Resolved]
  - Aggression [Recovered/Resolved]
  - Arthralgia [Recovered/Resolved]
  - Crying [Recovered/Resolved]
  - Partner stress [Recovered/Resolved]
  - Loss of personal independence in daily activities [Recovered/Resolved]
  - Weight increased [Recovered/Resolved]
  - Restless legs syndrome [Recovered/Resolved]
  - Malaise [Recovered/Resolved]
  - Rheumatic disorder [Recovered/Resolved]
  - Fatigue [Recovered/Resolved]

NARRATIVE: CASE EVENT DATE: 2017
